FAERS Safety Report 11939087 (Version 1)
Quarter: 2016Q1

REPORT INFORMATION
  Report Type: Spontaneous
  Country: CN (occurrence: CN)
  Receive Date: 20160122
  Receipt Date: 20160122
  Transmission Date: 20160526
  Serious: Yes (Other)
  Sender: FDA-Public Use
  Company Number: CN-SA-2016SA010159

PATIENT
  Age: 77 Year
  Sex: Female

DRUGS (3)
  1. HEPARIN SODIUM. [Concomitant]
     Active Substance: HEPARIN SODIUM
     Route: 058
     Dates: start: 20150310, end: 20150312
  2. ASPIRIN. [Concomitant]
     Active Substance: ASPIRIN
     Dosage: ENTERIC COATED TABLET
     Route: 048
     Dates: start: 20150310, end: 20150312
  3. CLOPIDOGREL BISULFATE. [Suspect]
     Active Substance: CLOPIDOGREL BISULFATE
     Indication: COAGULOPATHY
     Route: 048
     Dates: start: 20130310, end: 20150312

REACTIONS (1)
  - Occult blood positive [Recovered/Resolved]

NARRATIVE: CASE EVENT DATE: 20150312
